FAERS Safety Report 22314951 (Version 1)
Quarter: 2023Q2

REPORT INFORMATION
  Report Type: Spontaneous
  Country: SE (occurrence: SE)
  Receive Date: 20230512
  Receipt Date: 20230512
  Transmission Date: 20230721
  Serious: Yes (Other)
  Sender: FDA-Public Use
  Company Number: None

PATIENT
  Age: 23 Year
  Sex: Male

DRUGS (4)
  1. CONCERTA [Suspect]
     Active Substance: METHYLPHENIDATE HYDROCHLORIDE
     Indication: Attention deficit hyperactivity disorder
     Dosage: STARTING DOSE 18 MG. ESCALATION WITH 18 MG AT A TIME EVERY 2-4 WEEKS. TARGET DOSE 54-72 MG.
     Route: 048
     Dates: start: 20230124, end: 20230426
  2. ISOPTO-MAXIDEX [Concomitant]
     Route: 047
  3. CARBOMER [Concomitant]
     Active Substance: CARBOMER
     Route: 047
  4. AZATHIOPRINE [Concomitant]
     Active Substance: AZATHIOPRINE
     Route: 048

REACTIONS (1)
  - Intraocular pressure increased [Unknown]

NARRATIVE: CASE EVENT DATE: 20230419
